FAERS Safety Report 12578947 (Version 1)
Quarter: 2016Q3

REPORT INFORMATION
  Report Type: Report from Study
  Country: BR (occurrence: BR)
  Receive Date: 20160721
  Receipt Date: 20160721
  Transmission Date: 20161109
  Serious: Yes (Other)
  Sender: FDA-Public Use
  Company Number: PHHY2016BR098508

PATIENT
  Sex: Female
  Weight: 98 kg

DRUGS (1)
  1. DIOVAN AMLO FIX [Suspect]
     Active Substance: AMLODIPINE\VALSARTAN
     Indication: HYPERTENSION
     Dosage: 160 MG, QD (FOR 3 YEARS)
     Route: 048

REACTIONS (6)
  - Retinal ischaemia [Recovering/Resolving]
  - Glaucoma [Recovering/Resolving]
  - Malaise [Unknown]
  - Blindness [Recovering/Resolving]
  - Emotional disorder [Unknown]
  - Intraocular pressure increased [Recovering/Resolving]
